FAERS Safety Report 16761913 (Version 1)
Quarter: 2019Q3

REPORT INFORMATION
  Report Type: Spontaneous
  Country: SE (occurrence: PL)
  Receive Date: 20190830
  Receipt Date: 20190830
  Transmission Date: 20191005
  Serious: Yes (Hospitalization, Other)
  Sender: FDA-Public Use
  Company Number: SE-BAUSCH-BL-2019-024063

PATIENT
  Age: 16 Year
  Sex: Male
  Weight: 65.5 kg

DRUGS (8)
  1. LORAZEPAM. [Suspect]
     Active Substance: LORAZEPAM
     Dosage: RECEIVED 1-3 MG/DAY
     Route: 048
     Dates: start: 200909, end: 200909
  2. HALOPERIDOL. [Suspect]
     Active Substance: HALOPERIDOL
     Indication: AGGRESSION
     Route: 030
     Dates: start: 200909, end: 200909
  3. LEVOMEPROMAZINE [Suspect]
     Active Substance: LEVOMEPROMAZINE
     Indication: PSYCHOTIC DISORDER
     Route: 030
     Dates: start: 2009, end: 2009
  4. ACYCLOVIR. [Concomitant]
     Active Substance: ACYCLOVIR
     Indication: HERPES SIMPLEX ENCEPHALITIS
     Dates: start: 2009, end: 2009
  5. OLANZAPINE. [Suspect]
     Active Substance: OLANZAPINE
     Indication: PSYCHOTIC DISORDER
     Route: 048
     Dates: start: 200909, end: 200909
  6. LEVOMEPROMAZINE [Suspect]
     Active Substance: LEVOMEPROMAZINE
     Dosage: INCREASED DOSE
     Route: 030
     Dates: start: 2009, end: 200909
  7. DANTROLENE. [Concomitant]
     Active Substance: DANTROLENE SODIUM
     Indication: PROPHYLAXIS
     Dates: start: 2009, end: 2009
  8. LORAZEPAM. [Suspect]
     Active Substance: LORAZEPAM
     Indication: PSYCHOTIC DISORDER
     Dosage: AS REQUIRED
     Route: 048
     Dates: start: 200909, end: 200909

REACTIONS (2)
  - Neuroleptic malignant syndrome [Recovering/Resolving]
  - Toxicity to various agents [Unknown]

NARRATIVE: CASE EVENT DATE: 2009
